FAERS Safety Report 7827695-4 (Version None)
Quarter: 2011Q4

REPORT INFORMATION
  Report Type: 
  Country: None (occurrence: None)
  Receive Date: 20111018
  Receipt Date: 20111005
  Transmission Date: 20120403
  Serious: Yes (Death)
  Sender: FDA-Public Use
  Company Number: UTC-010888

PATIENT
  Age: 71 Year
  Sex: Male
  Weight: 141.8 kg

DRUGS (2)
  1. TYVASO [Suspect]
     Indication: COR PULMONALE CHRONIC
     Dosage: 18-54 MICROGRAMS (4 IN 1 D)INHALATION
     Route: 055
     Dates: start: 20110527
  2. REVATIO [Concomitant]

REACTIONS (1)
  - DEATH [None]
